FAERS Safety Report 21728457 (Version 1)
Quarter: 2022Q4

REPORT INFORMATION
  Report Type: Spontaneous
  Country: CN (occurrence: CN)
  Receive Date: 20221214
  Receipt Date: 20221214
  Transmission Date: 20230113
  Serious: Yes (Other)
  Sender: FDA-Public Use
  Company Number: CN-SA-SAC20221213000647

PATIENT
  Age: 31 Year
  Sex: Female

DRUGS (2)
  1. OXALIPLATIN [Suspect]
     Active Substance: OXALIPLATIN
     Indication: Adenocarcinoma of colon
     Dosage: 200 MG, QD
     Route: 041
     Dates: start: 20221123, end: 20221123
  2. CAPECITABINE [Concomitant]
     Active Substance: CAPECITABINE
     Indication: Adenocarcinoma of colon
     Dosage: 1.5 G, BID
     Route: 048
     Dates: start: 20221123

REACTIONS (1)
  - Neurotoxicity [Recovering/Resolving]

NARRATIVE: CASE EVENT DATE: 20221124
